FAERS Safety Report 4305139-7 (Version None)
Quarter: 2004Q1

REPORT INFORMATION
  Report Type: 
  Country: None (occurrence: None)
  Receive Date: 20040225
  Receipt Date: 20040225
  Transmission Date: 20041129
  Serious: Yes (Life-Threatening, Hospitalization)
  Sender: FDA-Public Use
  Company Number: None

PATIENT
  Age: 35 Year
  Sex: Female

DRUGS (6)
  1. HYDROMORPHONE [Suspect]
     Indication: PAIN
     Dosage: 2 MG/HR IV
     Route: 042
  2. FENTANYL [Suspect]
     Indication: PAIN
     Dosage: 100 MCG/HR TOPICALLY
     Route: 061
  3. INDANSETRON [Concomitant]
  4. SPIRONOLACTONE [Concomitant]
  5. DOCUSATE [Concomitant]
  6. SENNA [Concomitant]

REACTIONS (4)
  - DIZZINESS [None]
  - DYSPNOEA [None]
  - LETHARGY [None]
  - SEDATION [None]
